FAERS Safety Report 15385731 (Version 1)
Quarter: 2018Q3

REPORT INFORMATION
  Report Type: Report from Study
  Country: AU (occurrence: AU)
  Receive Date: 20180914
  Receipt Date: 20180914
  Transmission Date: 20181010
  Serious: Yes (Other)
  Sender: FDA-Public Use
  Company Number: AU-MYLANLABS-2018M1067301

PATIENT
  Age: 47 Year
  Sex: Female
  Weight: 104.4 kg

DRUGS (1)
  1. CLOZAPINE. [Suspect]
     Active Substance: CLOZAPINE
     Indication: SCHIZOPHRENIA
     Route: 065
     Dates: start: 2007

REACTIONS (2)
  - Type 2 diabetes mellitus [Unknown]
  - Metabolic syndrome [Recovering/Resolving]
